FAERS Safety Report 14977224 (Version 1)
Quarter: 2018Q2

REPORT INFORMATION
  Report Type: Spontaneous
  Country: US (occurrence: US)
  Receive Date: 20180606
  Receipt Date: 20180606
  Transmission Date: 20180711
  Serious: Yes (Other)
  Sender: FDA-Public Use
  Company Number: US-CONCORDIA PHARMACEUTICALS INC.-GSH201805-001790

PATIENT
  Age: 54 Year
  Sex: Female

DRUGS (4)
  1. PANTOPRAZOLE [Suspect]
     Active Substance: PANTOPRAZOLE
     Indication: GASTROOESOPHAGEAL REFLUX DISEASE
  2. HYDROXYCHLOROQUINE TABLET [Suspect]
     Active Substance: HYDROXYCHLOROQUINE
     Indication: RHEUMATOID ARTHRITIS
     Dosage: 1.5 TABLET BY MOUTH ONCE DAILY
     Route: 048
  3. PANTOPRAZOLE [Suspect]
     Active Substance: PANTOPRAZOLE
     Indication: GASTROOESOPHAGEAL REFLUX DISEASE
     Route: 048
  4. XELJANZ XR [Suspect]
     Active Substance: TOFACITINIB CITRATE
     Indication: RHEUMATOID ARTHRITIS
     Route: 048
     Dates: start: 201803, end: 20180423

REACTIONS (3)
  - Abdominal pain [Recovered/Resolved]
  - Dyspepsia [Recovering/Resolving]
  - Diarrhoea haemorrhagic [Recovered/Resolved]

NARRATIVE: CASE EVENT DATE: 20180420
